FAERS Safety Report 8603208-4 (Version None)
Quarter: 2012Q3

REPORT INFORMATION
  Report Type: 
  Country: None (occurrence: None)
  Receive Date: 20120817
  Receipt Date: 20120807
  Transmission Date: 20120928
  Serious: Yes (Life-Threatening)
  Sender: FDA-Public Use
  Company Number: JP-ROCHE-1087158

PATIENT
  Sex: Female
  Weight: 36 kg

DRUGS (5)
  1. PROCHLORPERAZINE [Concomitant]
     Route: 048
     Dates: start: 20120519, end: 20120609
  2. MORPHINE SULFATE [Concomitant]
     Route: 048
     Dates: start: 20120519, end: 20120609
  3. ALIMTA [Concomitant]
     Indication: LUNG ADENOCARCINOMA RECURRENT
     Route: 041
     Dates: start: 20120126, end: 20120101
  4. AVASTIN [Suspect]
     Indication: LUNG ADENOCARCINOMA RECURRENT
     Dosage: ONLY ONCE
     Route: 041
     Dates: start: 20120329, end: 20120329
  5. CARBOPLATIN [Concomitant]
     Indication: LUNG ADENOCARCINOMA RECURRENT
     Dosage: AUC4
     Route: 041
     Dates: start: 20120126, end: 20120101

REACTIONS (4)
  - HAEMOPTYSIS [None]
  - OBSTRUCTIVE AIRWAYS DISORDER [None]
  - PNEUMONIA [None]
  - CARDIO-RESPIRATORY ARREST [None]
